FAERS Safety Report 5292569-2 (Version None)
Quarter: 2007Q2

REPORT INFORMATION
  Report Type: 
  Country: None (occurrence: None)
  Receive Date: 20070410
  Receipt Date: 20070330
  Transmission Date: 20071010
  Serious: Yes (Other)
  Sender: FDA-Public Use
  Company Number: CA-PFIZER INC-2007027250

PATIENT
  Age: 74 Year
  Sex: Female
  Weight: 64 kg

DRUGS (8)
  1. LYRICA [Suspect]
     Route: 048
     Dates: start: 20070220, end: 20070222
  2. ATENOLOL AND CHLORTHALIDONE [Concomitant]
  3. CALCITONIN-SALMON [Concomitant]
  4. ACTONEL [Concomitant]
  5. DOCUSATE SODIUM [Concomitant]
  6. SLOW-K [Concomitant]
  7. CRESTOR [Concomitant]
  8. ADALAT [Concomitant]

REACTIONS (3)
  - ARTERITIS [None]
  - BURNING SENSATION [None]
  - DIZZINESS [None]
